FAERS Safety Report 12520109 (Version 3)
Quarter: 2016Q3

REPORT INFORMATION
  Report Type: Other
  Country: DK (occurrence: US)
  Receive Date: 20160630
  Receipt Date: 20160719
  Transmission Date: 20161109
  Serious: Yes (Hospitalization, Other)
  Sender: FDA-Public Use
  Company Number: US-FRI-1000085735

PATIENT
  Age: 45 Year
  Sex: Female

DRUGS (3)
  1. ESTROGEN [Suspect]
     Active Substance: ESTRONE\SUS SCROFA OVARY
     Indication: PRODUCT USED FOR UNKNOWN INDICATION
     Route: 065
  2. TRAZODONE [Concomitant]
     Active Substance: TRAZODONE HYDROCHLORIDE
     Indication: PRODUCT USED FOR UNKNOWN INDICATION
     Route: 065
  3. ESCITALOPRAM [Suspect]
     Active Substance: ESCITALOPRAM OXALATE
     Indication: PRODUCT USED FOR UNKNOWN INDICATION
     Route: 065

REACTIONS (1)
  - Reversible cerebral vasoconstriction syndrome [Recovered/Resolved]

NARRATIVE: CASE EVENT DATE: 2008
